FAERS Safety Report 6616660-0 (Version None)
Quarter: 2010Q1

REPORT INFORMATION
  Report Type: 
  Country: None (occurrence: None)
  Receive Date: 20100305
  Receipt Date: 20100225
  Transmission Date: 20100710
  Serious: Yes (Other)
  Sender: FDA-Public Use
  Company Number: ES-ROCHE-687748

PATIENT
  Age: 46 Year
  Sex: Female

DRUGS (2)
  1. OSELTAMIVIR PHOSPHATE [Suspect]
     Route: 048
     Dates: start: 20091028, end: 20091105
  2. ACETYLCYSTEINE [Concomitant]
     Route: 048
     Dates: start: 20091028, end: 20091031

REACTIONS (1)
  - CYTOLYTIC HEPATITIS [None]
